FAERS Safety Report 21228726 (Version 3)
Quarter: 2022Q4

REPORT INFORMATION
  Report Type: Report from Study
  Country: HK (occurrence: HK)
  Receive Date: 20220818
  Receipt Date: 20221229
  Transmission Date: 20230112
  Serious: Yes (Death, Life-Threatening, Hospitalization)
  Sender: FDA-Public Use
  Company Number: HK-GILEAD-2022-0593931

PATIENT
  Sex: Male

DRUGS (4)
  1. SACITUZUMAB GOVITECAN [Suspect]
     Active Substance: SACITUZUMAB GOVITECAN
     Indication: Neoplasm
     Dosage: 10 MG/KG ON DAY 1 AND DAY 8 OF A 21-DAY CYCLE
     Route: 042
     Dates: start: 20220721, end: 20220728
  2. SACITUZUMAB GOVITECAN [Suspect]
     Active Substance: SACITUZUMAB GOVITECAN
     Indication: Lung neoplasm malignant
  3. DIGOXIN [Concomitant]
     Active Substance: DIGOXIN
  4. AMIODARONE [Concomitant]
     Active Substance: AMIODARONE

REACTIONS (3)
  - Myocardial injury [Fatal]
  - Neutropenic sepsis [Recovered/Resolved with Sequelae]
  - Febrile neutropenia [Unknown]

NARRATIVE: CASE EVENT DATE: 20220801
